FAERS Safety Report 7559643-9 (Version None)
Quarter: 2011Q2

REPORT INFORMATION
  Report Type: 
  Country: None (occurrence: None)
  Receive Date: 20110621
  Receipt Date: 20110615
  Transmission Date: 20111010
  Serious: Yes (Hospitalization)
  Sender: FDA-Public Use
  Company Number: US-B.I. PHARMACEUTICALS,INC./RIDGEFIELD-2011-BP-15430BP

PATIENT
  Sex: Male

DRUGS (9)
  1. POTASSIUM CHLORIDE [Concomitant]
     Indication: ELECTROLYTE SUBSTITUTION THERAPY
     Route: 048
  2. REQUIP [Concomitant]
     Indication: RESTLESSNESS
     Route: 048
  3. TRAMADOL HCL [Concomitant]
     Indication: MIGRAINE
     Route: 048
  4. LIPITOR [Concomitant]
     Indication: BLOOD CHOLESTEROL INCREASED
     Route: 048
  5. TAMBOCOR [Concomitant]
     Indication: ATRIAL FIBRILLATION
     Route: 048
  6. LEXAPRO [Concomitant]
     Route: 048
  7. PRADAXA [Suspect]
     Indication: ATRIAL FIBRILLATION
     Dosage: 300 MG
     Route: 048
     Dates: end: 20110616
  8. LASIX [Concomitant]
     Indication: CARDIAC FAILURE CONGESTIVE
     Route: 048
  9. OMEGA-3-ACID ETHYL ESTERS [Concomitant]
     Route: 048

REACTIONS (4)
  - DYSPNOEA [None]
  - URINARY RETENTION [None]
  - PULMONARY EMBOLISM [None]
  - ACNE [None]
